FAERS Safety Report 23079018 (Version 2)
Quarter: 2024Q2

REPORT INFORMATION
  Report Type: Spontaneous
  Country: US (occurrence: US)
  Receive Date: 20231018
  Receipt Date: 20240609
  Transmission Date: 20240716
  Serious: No
  Sender: FDA-Public Use
  Company Number: US-002147023-NVSC2023US223530

PATIENT
  Sex: Female

DRUGS (1)
  1. MEKINIST [Suspect]
     Active Substance: TRAMETINIB DIMETHYL SULFOXIDE
     Indication: Langerhans^ cell histiocytosis
     Dosage: 0.75 MG, QD
     Route: 048
     Dates: start: 201908

REACTIONS (3)
  - Eye disorder [Unknown]
  - Dry eye [Unknown]
  - Product use in unapproved indication [Unknown]
